FAERS Safety Report 9319966 (Version 2)
Quarter: 2013Q3

REPORT INFORMATION
  Report Type: Report from Study
  Country: AR (occurrence: AR)
  Receive Date: 20130530
  Receipt Date: 20130909
  Transmission Date: 20140515
  Serious: Yes (Hospitalization, Other)
  Sender: FDA-Public Use
  Company Number: PHHY2013AR054761

PATIENT
  Sex: Female

DRUGS (1)
  1. DIOVAN [Suspect]
     Indication: HYPERTENSION
     Dosage: UNK UKN, UNK
     Route: 048

REACTIONS (3)
  - Meniscus injury [Recovering/Resolving]
  - Arthralgia [Recovering/Resolving]
  - Osteoarthritis [Recovering/Resolving]
